FAERS Safety Report 13080826 (Version 14)
Quarter: 2019Q3

REPORT INFORMATION
  Report Type: Report from Study
  Country: CA (occurrence: CA)
  Receive Date: 20170103
  Receipt Date: 20190717
  Transmission Date: 20191004
  Serious: Yes (Other)
  Sender: FDA-Public Use
  Company Number: CA-TAKEDA-2016TUS008343

PATIENT
  Age: 73 Year
  Sex: Male

DRUGS (7)
  1. VEDOLIZUMAB [Suspect]
     Active Substance: VEDOLIZUMAB
     Indication: CROHN^S DISEASE
     Dosage: 300 MILLIGRAM
     Route: 042
     Dates: start: 20160330
  2. VEDOLIZUMAB [Suspect]
     Active Substance: VEDOLIZUMAB
     Dosage: 300 MILLIGRAM
     Route: 042
  3. IRON [Concomitant]
     Active Substance: IRON
     Indication: SUPPLEMENTATION THERAPY
     Dosage: UNK
     Route: 042
  4. VEDOLIZUMAB [Suspect]
     Active Substance: VEDOLIZUMAB
     Dosage: 300 MILLIGRAM
     Route: 042
  5. BCG [Suspect]
     Active Substance: BCG VACCINE
     Indication: BLADDER CANCER
     Dosage: UNK
     Route: 043
     Dates: start: 20160411, end: 2016
  6. VEDOLIZUMAB [Suspect]
     Active Substance: VEDOLIZUMAB
     Dosage: 300 MILLIGRAM
     Route: 042
  7. VEDOLIZUMAB [Suspect]
     Active Substance: VEDOLIZUMAB
     Dosage: 300 MILLIGRAM
     Route: 042

REACTIONS (19)
  - Urostomy [Unknown]
  - Diarrhoea [Not Recovered/Not Resolved]
  - Transurethral bladder resection [Unknown]
  - Renal neoplasm [Unknown]
  - Urinary cystectomy [Unknown]
  - Cystitis [Not Recovered/Not Resolved]
  - Fatigue [Unknown]
  - Nephrectomy [Unknown]
  - Cough [Unknown]
  - Skin cancer [Unknown]
  - Cataract [Unknown]
  - Dysuria [Unknown]
  - Myalgia [Unknown]
  - Pyrexia [Unknown]
  - Procedural pain [Unknown]
  - Haemoglobin decreased [Unknown]
  - Pollakiuria [Unknown]
  - Blood pressure increased [Not Recovered/Not Resolved]
  - Hyperhidrosis [Unknown]

NARRATIVE: CASE EVENT DATE: 2016
